FAERS Safety Report 9628617 (Version 2)
Quarter: 2013Q4

REPORT INFORMATION
  Report Type: Spontaneous
  Country: US (occurrence: US)
  Receive Date: 20131017
  Receipt Date: 20131126
  Transmission Date: 20140711
  Serious: No
  Sender: FDA-Public Use
  Company Number: US-009507513-1310USA006452

PATIENT
  Age: 70 Year
  Sex: Female

DRUGS (1)
  1. CLARITIN-D-24 [Suspect]
     Indication: SINUSITIS
     Dosage: UNK, UNKNOWN
     Route: 048
     Dates: start: 201309

REACTIONS (3)
  - Dry throat [Unknown]
  - Dry mouth [Unknown]
  - Off label use [Unknown]
